FAERS Safety Report 4355576-X (Version None)
Quarter: 2004Q2

REPORT INFORMATION
  Report Type: 
  Country: None (occurrence: None)
  Receive Date: 20040510
  Receipt Date: 20040426
  Transmission Date: 20050107
  Serious: Yes (Hospitalization)
  Sender: FDA-Public Use
  Company Number: US-GLAXOSMITHKLINE-A0508637A

PATIENT
  Age: 21 Year
  Sex: Male
  Weight: 79.7 kg

DRUGS (1)
  1. LEXIVA [Suspect]
     Indication: HIV INFECTION
     Dosage: 700MG VARIABLE DOSE
     Route: 048
     Dates: start: 20040311, end: 20040426

REACTIONS (4)
  - ALANINE AMINOTRANSFERASE INCREASED [None]
  - ASPARTATE AMINOTRANSFERASE INCREASED [None]
  - BLOOD CREATINE PHOSPHOKINASE INCREASED [None]
  - BLOOD LACTATE DEHYDROGENASE INCREASED [None]
